FAERS Safety Report 6921732-7 (Version None)
Quarter: 2010Q3

REPORT INFORMATION
  Report Type: 
  Country: None (occurrence: None)
  Receive Date: 20100812
  Receipt Date: 20100804
  Transmission Date: 20110219
  Serious: Yes (Life-Threatening, Hospitalization)
  Sender: FDA-Public Use
  Company Number: US-JNJFOC-20100801123

PATIENT
  Age: 12 Month
  Sex: Female

DRUGS (2)
  1. CONCENTRATED TYLENOL INFANT DROPS [Suspect]
     Indication: TEETHING
     Route: 048
  2. CONCENTRATED TYLENOL INFANT DROPS [Suspect]
     Indication: PYREXIA
     Route: 048

REACTIONS (5)
  - CENTRAL NERVOUS SYSTEM INFECTION [None]
  - CONVULSION [None]
  - CSF SHUNT OPERATION [None]
  - DYSPNOEA [None]
  - PRODUCT QUALITY ISSUE [None]
